FAERS Safety Report 23333296 (Version 1)
Quarter: 2023Q4

REPORT INFORMATION
  Report Type: Spontaneous
  Country: US (occurrence: US)
  Receive Date: 20231222
  Receipt Date: 20231222
  Transmission Date: 20240109
  Serious: No
  Sender: FDA-Public Use
  Company Number: US-CTI BIOPHARMA-2023US04135

PATIENT

DRUGS (1)
  1. VONJO [Suspect]
     Active Substance: PACRITINIB
     Indication: Myelofibrosis
     Dosage: 100 MG, QD
     Route: 048
     Dates: start: 20230526

REACTIONS (9)
  - Hypoacusis [Recovering/Resolving]
  - Onychoclasis [Unknown]
  - Alopecia [Unknown]
  - Joint injury [Unknown]
  - Thirst [Unknown]
  - Condition aggravated [Unknown]
  - Gait disturbance [Unknown]
  - Mobility decreased [Unknown]
  - Walking aid user [Unknown]
